FAERS Safety Report 4320452-5 (Version None)
Quarter: 2004Q1

REPORT INFORMATION
  Report Type: 
  Country: None (occurrence: None)
  Receive Date: 20040317
  Receipt Date: 20040309
  Transmission Date: 20041129
  Serious: Yes (Other)
  Sender: FDA-Public Use
  Company Number: 2004UW04522

PATIENT
  Sex: Female

DRUGS (2)
  1. SEROQUEL [Suspect]
  2. DEPAKOTE [Concomitant]

REACTIONS (3)
  - DIABETES MELLITUS [None]
  - NEUTROPENIA [None]
  - WEIGHT INCREASED [None]
